FAERS Safety Report 8758981 (Version 2)
Quarter: 2012Q4

REPORT INFORMATION
  Report Type: 
  Country: AU (occurrence: AU)
  Receive Date: 20120829
  Receipt Date: 20121010
  Transmission Date: 20130627
  Serious: Yes (Death, Other)
  Sender: FDA-Public Use
  Company Number: AU-AMGEN-AUSSP2012053483

PATIENT
  Age: 81 Year
  Sex: Male

DRUGS (12)
  1. ARANESP [Suspect]
     Indication: NEPHROGENIC ANAEMIA
     Dosage: 20 mug, UNK
     Route: 058
     Dates: start: 20120327, end: 20120402
  2. IRON [Concomitant]
     Dosage: UNK
     Dates: start: 20120229
  3. PERINDOPRIL [Concomitant]
     Dosage: 4 mg, qd
  4. DIGOXIN [Concomitant]
  5. PERHEXILINE [Concomitant]
  6. ASPIRIN [Concomitant]
  7. SOMAC [Concomitant]
  8. PRAZOSIN [Concomitant]
     Dosage: 2 mg, bid
  9. FRUSEMIDE                          /00032601/ [Concomitant]
     Dosage: UNK UNK, prn
  10. CRESTOR [Concomitant]
  11. GLICLAZIDE [Concomitant]
  12. MONODUR [Concomitant]

REACTIONS (10)
  - Death [Fatal]
  - Transient ischaemic attack [Unknown]
  - Loss of consciousness [Unknown]
  - Feeling abnormal [Unknown]
  - Head injury [Unknown]
  - Balance disorder [Recovered/Resolved]
  - Nausea [Recovered/Resolved]
  - Limb discomfort [Recovered/Resolved]
  - Fall [Unknown]
  - Dizziness [Recovered/Resolved]
